FAERS Safety Report 22598626 (Version 1)
Quarter: 2023Q2

REPORT INFORMATION
  Report Type: Other
  Country: None (occurrence: US)
  Receive Date: 20230614
  Receipt Date: 20230614
  Transmission Date: 20230722
  Serious: Yes (Hospitalization, Other)
  Sender: FDA-Public Use
  Company Number: US-Zhejiang Yongtai pharmaceuticals Co..,Ltd.-2142687

PATIENT
  Age: 56 Year
  Sex: Male

DRUGS (1)
  1. DOXYCYCLINE HYCLATE [Suspect]
     Active Substance: DOXYCYCLINE HYCLATE
     Indication: Staphylococcal infection
     Route: 065

REACTIONS (1)
  - Nephrogenic diabetes insipidus [Recovered/Resolved]
